FAERS Safety Report 10896518 (Version 3)
Quarter: 2015Q1

REPORT INFORMATION
  Report Type: Report from Study
  Country: GR (occurrence: GR)
  Receive Date: 20150309
  Receipt Date: 20150317
  Transmission Date: 20150721
  Serious: Yes (Death)
  Sender: FDA-Public Use
  Company Number: GR-TEVA-546234ISR

PATIENT

DRUGS (3)
  1. DOCETAXEL. [Suspect]
     Active Substance: DOCETAXEL
     Indication: NON-SMALL CELL LUNG CANCER METASTATIC
     Dosage: 75 MG/M2 DAILY; DAY 1, 6 CYCLES, EVERY 3 WEEKS. 75 MG/M2, CYCLIC
  2. CISPLATIN. [Suspect]
     Active Substance: CISPLATIN
     Indication: NON-SMALL CELL LUNG CANCER METASTATIC
     Dosage: 80 MG/M2 DAILY; DAY 1, 6 CYCLES, EVERY 3 WEEKS. 80 MG/M2, CYCLIC
  3. BEVACIZUMAB [Suspect]
     Active Substance: BEVACIZUMAB
     Indication: NON-SMALL CELL LUNG CANCER METASTATIC
     Dosage: 15 MG/KG DAILY; DAY 1, 6 CYCLES, EVERY 3 WEEKS. 15 MG/KG, CYCLIC

REACTIONS (1)
  - Intra-abdominal haemorrhage [Fatal]
